FAERS Safety Report 12234534 (Version 1)
Quarter: 2016Q2

REPORT INFORMATION
  Report Type: Spontaneous
  Country: US (occurrence: None)
  Receive Date: 20160401
  Receipt Date: 20160401
  Transmission Date: 20160815
  Serious: Yes (Other)
  Sender: FDA-Public Use
  Company Number: None

PATIENT
  Age: 67 Year
  Sex: Male

DRUGS (1)
  1. AMLODIPINE/BENAZEIPRIL, 10-40 [Suspect]
     Active Substance: AMLODIPINE BESYLATE\BENAZEPRIL HYDROCHLORIDE
     Route: 048
     Dates: start: 20160317, end: 20160331

REACTIONS (2)
  - Blood pressure systolic increased [None]
  - Product substitution issue [None]

NARRATIVE: CASE EVENT DATE: 20160331
